FAERS Safety Report 8478152-6 (Version None)
Quarter: 2012Q2

REPORT INFORMATION
  Report Type: 
  Country: None (occurrence: None)
  Receive Date: 20120629
  Receipt Date: 20120622
  Transmission Date: 20120825
  Serious: Yes (Other)
  Sender: FDA-Public Use
  Company Number: PHHY2011US57043

PATIENT
  Sex: Female
  Weight: 104 kg

DRUGS (2)
  1. GILENYA [Suspect]
     Indication: RELAPSING-REMITTING MULTIPLE SCLEROSIS
     Dosage: 0.5 MG, QD
     Route: 048
     Dates: start: 20110217
  2. ADDERALL 5 [Concomitant]
     Dosage: UNK UKN, UNK

REACTIONS (8)
  - MACULAR DEGENERATION [None]
  - BLOOD PRESSURE INCREASED [None]
  - TREMOR [None]
  - DYSPNOEA [None]
  - PALPITATIONS [None]
  - HEADACHE [None]
  - VISUAL IMPAIRMENT [None]
  - DIZZINESS [None]
